FAERS Safety Report 8321495-7 (Version None)
Quarter: 2012Q2

REPORT INFORMATION
  Report Type: 
  Country: None (occurrence: None)
  Receive Date: 20120430
  Receipt Date: 20120430
  Transmission Date: 20120825
  Serious: Yes (Death)
  Sender: FDA-Public Use
  Company Number: None

PATIENT
  Age: 59 Year
  Sex: Female
  Weight: 87.543 kg

DRUGS (18)
  1. OMEPRAZOLE [Concomitant]
     Route: 048
  2. WARFARIN SODIUM [Concomitant]
     Route: 048
  3. ENOXAPARIN [Concomitant]
     Route: 058
  4. DARIFENACIN [Concomitant]
     Route: 048
  5. WARFARIN SODIUM [Concomitant]
     Route: 048
  6. LENALIDOMIDE [Suspect]
     Indication: DIFFUSE LARGE B-CELL LYMPHOMA
     Dosage: 15 MG
     Route: 048
     Dates: start: 20111130, end: 20120417
  7. PREDNISONE [Concomitant]
     Route: 048
  8. CARVEDILOL [Concomitant]
     Route: 048
  9. POTASSIUM CHLORIDE [Concomitant]
     Route: 048
  10. ONDANSETRON [Concomitant]
     Route: 048
  11. ZOLPIDEM [Concomitant]
     Route: 048
  12. FUROSEMIDE [Concomitant]
     Route: 048
  13. INSULIN GLARGINE [Concomitant]
     Route: 058
  14. OXYCODONE HCL EXTENDED-RELEASE [Concomitant]
     Route: 048
  15. HYDROCODONE BITARTRATE + ACETAMINOPHEN [Concomitant]
     Route: 048
  16. PYRIDOSTIGMINE BROMIDE [Concomitant]
     Route: 048
  17. SERTRALINE HYDROCHLORIDE [Concomitant]
     Route: 048
  18. SIMVASTATIN [Concomitant]
     Route: 048

REACTIONS (1)
  - POST PROCEDURAL COMPLICATION [None]
